FAERS Safety Report 5483855-1 (Version None)
Quarter: 2007Q4

REPORT INFORMATION
  Report Type: 
  Country: None (occurrence: None)
  Receive Date: 20071010
  Receipt Date: 20071010
  Transmission Date: 20080405
  Serious: Yes (Hospitalization)
  Sender: FDA-Public Use
  Company Number: None

PATIENT
  Age: 62 Year
  Sex: Male
  Weight: 113.3993 kg

DRUGS (2)
  1. FLUCONAZOLE [Suspect]
     Indication: MENINGITIS CANDIDA
     Dosage: 400 MG DAILY PO
     Route: 048
     Dates: start: 20070913, end: 20070926
  2. IRBESARTAN [Suspect]
     Indication: HYPERTENSION
     Dosage: 150 MG DAILY PO
     Route: 048
     Dates: start: 20070915, end: 20070926

REACTIONS (5)
  - ASTHENIA [None]
  - DIZZINESS [None]
  - DRUG INTERACTION [None]
  - ORTHOSTATIC HYPOTENSION [None]
  - SYNCOPE [None]
